FAERS Safety Report 8506927-3 (Version None)
Quarter: 2012Q3

REPORT INFORMATION
  Report Type: 
  Country: None (occurrence: None)
  Receive Date: 20120712
  Receipt Date: 20120703
  Transmission Date: 20120928
  Serious: Yes (Hospitalization, Other)
  Sender: FDA-Public Use
  Company Number: RO-ABBOTT-12P-135-0953547-00

PATIENT
  Sex: Female
  Weight: 50 kg

DRUGS (6)
  1. HUMIRA [Suspect]
     Indication: RHEUMATOID ARTHRITIS
     Route: 058
     Dates: start: 20050701, end: 20120501
  2. CRESTOR [Concomitant]
     Indication: DYSLIPIDAEMIA
     Route: 048
     Dates: start: 20080101
  3. OASEOR [Concomitant]
     Indication: OSTEOPOROSIS
     Route: 048
     Dates: start: 20100101
  4. ENAP [Concomitant]
     Indication: HYPERTENSION
     Route: 048
     Dates: start: 20000101
  5. BETALOK [Concomitant]
     Indication: HYPERTENSION
     Route: 048
     Dates: start: 20000101
  6. OLICARD [Concomitant]
     Indication: MYOCARDIAL ISCHAEMIA
     Route: 048
     Dates: start: 20000101

REACTIONS (5)
  - SYSTEMIC INFLAMMATORY RESPONSE SYNDROME [None]
  - LUNG NEOPLASM [None]
  - COUGH [None]
  - LYMPHADENOPATHY MEDIASTINAL [None]
  - ASTHENIA [None]
